FAERS Safety Report 5319624-2 (Version None)
Quarter: 2007Q2

REPORT INFORMATION
  Report Type: 
  Country: None (occurrence: None)
  Receive Date: 20070503
  Receipt Date: 20070413
  Transmission Date: 20071010
  Serious: Yes (Life-Threatening, Hospitalization)
  Sender: FDA-Public Use
  Company Number: S07-NOR-01831-01

PATIENT
  Age: 65 Year
  Sex: Female

DRUGS (10)
  1. ESCITALOPRAM [Suspect]
     Indication: DEPRESSION
     Dosage: 20 MG QD PO
     Route: 048
     Dates: end: 20070219
  2. ALDOMET [Suspect]
     Indication: HYPERTENSION
     Dates: start: 20070218, end: 20070219
  3. DIURAL (FUROSEMIDE) [Concomitant]
  4. RAMIPRIL [Concomitant]
  5. ETALPHA (COLECALCIFEROL) [Concomitant]
  6. RENAVIT [Concomitant]
  7. NEXIUM [Concomitant]
  8. PARACET (PARACETAMOL) [Concomitant]
  9. ALBYL-E [Concomitant]
  10. IRBESARTAN [Concomitant]

REACTIONS (38)
  - AKATHISIA [None]
  - APHASIA [None]
  - BLOOD BILIRUBIN INCREASED [None]
  - BLOOD CALCIUM INCREASED [None]
  - BLOOD CREATINE ABNORMAL [None]
  - BLOOD PHOSPHORUS DECREASED [None]
  - BLOOD POTASSIUM INCREASED [None]
  - BLOOD PRESSURE FLUCTUATION [None]
  - BODY TEMPERATURE INCREASED [None]
  - BRAIN DAMAGE [None]
  - C-REACTIVE PROTEIN INCREASED [None]
  - CEREBRAL INFARCTION [None]
  - CONFUSIONAL STATE [None]
  - CSF TEST ABNORMAL [None]
  - CULTURE URINE POSITIVE [None]
  - DRUG INTERACTION [None]
  - DYSARTHRIA [None]
  - DYSPRAXIA [None]
  - ENTEROCOCCAL INFECTION [None]
  - GRAND MAL CONVULSION [None]
  - HAEMOGLOBIN DECREASED [None]
  - HIGH DENSITY LIPOPROTEIN ABNORMAL [None]
  - HYPERTENSIVE CRISIS [None]
  - MUSCLE SPASTICITY [None]
  - NEGLECT OF PERSONAL APPEARANCE [None]
  - NEUROLOGICAL SYMPTOM [None]
  - OEDEMA PERIPHERAL [None]
  - OSTEOARTHRITIS [None]
  - RED BLOOD CELL SEDIMENTATION RATE INCREASED [None]
  - RETINOPATHY HYPERTENSIVE [None]
  - SEROTONIN SYNDROME [None]
  - SERUM FERRITIN INCREASED [None]
  - SOMNOLENCE [None]
  - SPINAL OSTEOARTHRITIS [None]
  - TACHYCARDIA [None]
  - UNRESPONSIVE TO STIMULI [None]
  - VISUAL ACUITY REDUCED [None]
  - WHITE BLOOD CELL COUNT INCREASED [None]
